FAERS Safety Report 23819462 (Version 2)
Quarter: 2024Q2

REPORT INFORMATION
  Report Type: Spontaneous
  Country: US (occurrence: US)
  Receive Date: 20240506
  Receipt Date: 20240520
  Transmission Date: 20240716
  Serious: Yes (Other)
  Sender: FDA-Public Use
  Company Number: US-ASTELLAS-2024EU004303

PATIENT
  Age: 65 Year
  Sex: Male

DRUGS (9)
  1. MICAFUNGIN [Interacting]
     Active Substance: MICAFUNGIN SODIUM
     Indication: Keratitis fungal
     Dosage: UNK, UNK, OTHER (0.1 % TOPICAL MICAFUNGIN, EVERY 2 HRS)
     Route: 061
  2. MICAFUNGIN [Interacting]
     Active Substance: MICAFUNGIN SODIUM
     Indication: Fungal infection
     Dosage: 0.05 ML, UNKNOWN FREQ. (INTRASTROMAL) (0.05 ML OF 1 MG/ML)
     Route: 047
  3. AMPHOTERICIN B [Interacting]
     Active Substance: AMPHOTERICIN B
     Indication: Keratitis fungal
     Dosage: UNK UNK, OTHER (0.15 %, OTHER (0.15%, EVERY 2 HOURS))
     Route: 061
  4. AMPHOTERICIN B [Interacting]
     Active Substance: AMPHOTERICIN B
     Indication: Fungal infection
     Dosage: 0.05 ML, UNKNOWN FREQ. (INTRASTROMAL, 0.05 ML OF 1.5 MG/ML)
     Route: 047
  5. VORICONAZOLE [Concomitant]
     Active Substance: VORICONAZOLE
     Indication: Keratitis fungal
     Dosage: UNK UNK, OTHER (EVERY 2 HOURS)
     Route: 061
  6. VORICONAZOLE [Concomitant]
     Active Substance: VORICONAZOLE
     Indication: Fungal infection
     Route: 048
  7. LIDOCAINE [Concomitant]
     Active Substance: LIDOCAINE
     Indication: Local anaesthesia
     Dosage: UNK UNK, UNKNOWN FREQ. (1 CM RIBBON)
     Route: 065
  8. POVIDONE-IODINE [Concomitant]
     Active Substance: POVIDONE-IODINE
     Indication: Ophthalmological examination
     Dosage: UNK UNK, UNKNOWN FREQ.
     Route: 065
  9. TUBERCULIN NOS [Concomitant]
     Active Substance: TUBERCULIN PURIFIED PROTEIN DERIVATIVE
     Indication: Product used for unknown indication
     Dosage: UNK UNK, UNKNOWN FREQ.
     Route: 065

REACTIONS (5)
  - Anterior chamber disorder [Recovered/Resolved]
  - Ocular discomfort [Recovered/Resolved]
  - Drug effective for unapproved indication [Unknown]
  - Off label use [Unknown]
  - Off label use [Recovered/Resolved]
